FAERS Safety Report 16797108 (Version 1)
Quarter: 2019Q3

REPORT INFORMATION
  Report Type: Spontaneous
  Country: ES (occurrence: ES)
  Receive Date: 20190911
  Receipt Date: 20190911
  Transmission Date: 20191005
  Serious: Yes (Other)
  Sender: FDA-Public Use
  Company Number: PHHY2019ES208332

PATIENT
  Age: 36 Year
  Sex: Female

DRUGS (4)
  1. COTRIMOXAZOLE [Suspect]
     Active Substance: SULFAMETHOXAZOLE\TRIMETHOPRIM
     Indication: PROPHYLAXIS
     Route: 065
  2. CIPROFLOXACIN. [Suspect]
     Active Substance: CIPROFLOXACIN
     Indication: URINARY TRACT INFECTION
     Dosage: 500 MG, UNK
     Route: 065
  3. ALEMTUZUMAB [Concomitant]
     Active Substance: ALEMTUZUMAB
     Indication: MULTIPLE SCLEROSIS
     Route: 065
  4. ACYCLOVIR. [Suspect]
     Active Substance: ACYCLOVIR
     Indication: PROPHYLAXIS
     Route: 065

REACTIONS (5)
  - Asthenia [Unknown]
  - Pyrexia [Unknown]
  - Cytomegalovirus viraemia [Recovered/Resolved]
  - Hepatic function abnormal [Unknown]
  - Lymphopenia [Recovered/Resolved]
